FAERS Safety Report 14612082 (Version 1)
Quarter: 2018Q1

REPORT INFORMATION
  Report Type: Spontaneous
  Country: US (occurrence: US)
  Receive Date: 20180307
  Receipt Date: 20180307
  Transmission Date: 20180509
  Serious: Yes (Hospitalization)
  Sender: FDA-Public Use
  Company Number: None

PATIENT
  Age: 63 Year
  Sex: Female
  Weight: 65.5 kg

DRUGS (17)
  1. ATARAX [Concomitant]
     Active Substance: HYDROXYZINE HYDROCHLORIDE
     Dates: start: 20180305
  2. ZOFRAN 8 MG [Concomitant]
     Dates: start: 20170726
  3. PROTONIX 40 MG [Concomitant]
     Dates: start: 20170712
  4. NIVOLUMAB [Suspect]
     Active Substance: NIVOLUMAB
     Indication: CHOROID MELANOMA
     Dosage: ?          OTHER FREQUENCY:EVERY 2 WEEKS;?
     Route: 042
     Dates: start: 20180206, end: 20180306
  5. PREMARIN 0.625 MG VAGINAL CREAM [Concomitant]
     Dates: start: 20171106
  6. PHENERGAN [Concomitant]
     Active Substance: PROMETHAZINE HYDROCHLORIDE
     Dates: start: 20171019
  7. LIPITOR [Concomitant]
     Active Substance: ATORVASTATIN CALCIUM
     Dates: start: 20170712
  8. TRNASDERM-SCOP 1 MG [Concomitant]
     Dates: start: 20180220
  9. ZYRTEC [Concomitant]
     Active Substance: CETIRIZINE HYDROCHLORIDE
  10. FLORASTOR 250 MG [Concomitant]
  11. VITAMIN D3 1,000 UNITS [Concomitant]
  12. DECADRON [Concomitant]
     Active Substance: DEXAMETHASONE
     Dates: start: 20180220
  13. PERIACTIN 4 MG [Concomitant]
     Dates: start: 20180202
  14. ATIVAN 0.5 MG [Concomitant]
     Dates: start: 20180220
  15. ROXICODONE 5 MG [Concomitant]
     Dates: start: 20170206
  16. DIOVAN 80MG [Concomitant]
  17. REMERON 7.5 MG [Concomitant]
     Dates: start: 20180220

REACTIONS (1)
  - Hyponatraemia [None]

NARRATIVE: CASE EVENT DATE: 20180306
